FAERS Safety Report 7610965-2 (Version None)
Quarter: 2011Q3

REPORT INFORMATION
  Report Type: 
  Country: None (occurrence: None)
  Receive Date: 20110715
  Receipt Date: 20110711
  Transmission Date: 20111222
  Serious: Yes (Life-Threatening, Other)
  Sender: FDA-Public Use
  Company Number: PHHY2011JP40113

PATIENT
  Age: 73 Year
  Sex: Female

DRUGS (18)
  1. SULFAMETHOXAZOLE [Concomitant]
     Indication: PROPHYLAXIS
     Dosage: 1 DF, UNK
     Route: 048
  2. GLYCEOL [Concomitant]
     Dosage: 300 ML TWICE DAILY
  3. ALFAROL [Concomitant]
     Indication: OSTEOPOROSIS
     Dosage: 1 ?G
     Route: 048
     Dates: end: 20110427
  4. SULFAMETHOXAZOLE [Concomitant]
     Dosage: UNK
     Route: 048
  5. SELBEX [Concomitant]
     Indication: GASTRITIS
     Dosage: 150 MG
     Route: 048
     Dates: end: 20110427
  6. MEDICON [Concomitant]
     Indication: INTERSTITIAL LUNG DISEASE
     Dosage: 90 MG
     Route: 048
     Dates: end: 20110427
  7. PREDNISOLONE [Concomitant]
     Dosage: UNK
     Route: 048
     Dates: start: 19960101
  8. NEORAL [Suspect]
     Dosage: UNK
     Route: 048
     Dates: start: 20110507
  9. JUVELA NICOTINATE [Concomitant]
     Dosage: 300 MG
     Route: 048
     Dates: end: 20110427
  10. NEORAL [Suspect]
     Indication: NEPHROTIC SYNDROME
     Dosage: 100 MG
     Route: 048
     Dates: start: 19960101, end: 20110427
  11. PREDNISOLONE [Concomitant]
     Indication: INTERSTITIAL LUNG DISEASE
     Dosage: 12.5 MG
     Route: 048
     Dates: start: 19960101
  12. DILTIAZEM HCL [Concomitant]
     Dosage: 4 MG/ML
     Route: 041
  13. AMLODIPINE [Concomitant]
     Dosage: 5 MG
     Route: 042
  14. TENORMIN [Concomitant]
     Dosage: 1 TABLET ONCE DAILY
  15. FAMOTIDINE [Concomitant]
     Indication: GASTRITIS
     Dosage: 40 MG
     Route: 048
     Dates: end: 20110427
  16. METHYCOBAL [Concomitant]
     Dosage: 1500?G
     Route: 048
     Dates: end: 20110427
  17. RHYTHMY [Concomitant]
     Indication: INSOMNIA
     Dosage: 2 MG
     Route: 048
     Dates: end: 20110427
  18. DEPAS [Concomitant]
     Dosage: 3 TABLETS DAILY

REACTIONS (9)
  - BLOOD PRESSURE INCREASED [None]
  - MOVEMENT DISORDER [None]
  - CEREBRAL HAEMORRHAGE [None]
  - ASTHENIA [None]
  - APHASIA [None]
  - EYE MOVEMENT DISORDER [None]
  - DYSPHAGIA [None]
  - HEMIPLEGIA [None]
  - LOSS OF CONSCIOUSNESS [None]
